FAERS Safety Report 5768676-4 (Version None)
Quarter: 2008Q2

REPORT INFORMATION
  Report Type: 
  Country: None (occurrence: None)
  Receive Date: 20080612
  Receipt Date: 20080519
  Transmission Date: 20081010
  Serious: No
  Sender: FDA-Public Use
  Company Number: US-BOEHRINGER INGELHEIM GMBH, GERMANY-2008-BP-07747BP

PATIENT
  Age: 71 Year
  Sex: Male

DRUGS (2)
  1. AGGRENOX [Suspect]
     Indication: CEREBROVASCULAR ACCIDENT PROPHYLAXIS
     Route: 048
     Dates: start: 20080503
  2. QUESTRAN [Concomitant]

REACTIONS (5)
  - ABDOMINAL PAIN [None]
  - FATIGUE [None]
  - HEADACHE [None]
  - NAUSEA [None]
  - SOMNOLENCE [None]
